FAERS Safety Report 16756398 (Version 3)
Quarter: 2020Q1

REPORT INFORMATION
  Report Type: Report from Study
  Country: US (occurrence: US)
  Receive Date: 20190829
  Receipt Date: 20200316
  Transmission Date: 20200409
  Serious: Yes (Hospitalization)
  Sender: FDA-Public Use
  Company Number: US-ACTELION-A-US2019-193764

PATIENT
  Sex: Female
  Weight: 48.07 kg

DRUGS (2)
  1. VELETRI [Suspect]
     Active Substance: EPOPROSTENOL
     Dosage: 8.5 NG/KG, PER MIN
     Route: 042
  2. VELETRI [Suspect]
     Active Substance: EPOPROSTENOL
     Indication: PULMONARY ARTERIAL HYPERTENSION
     Dosage: 40 NG/KG, PER MIN
     Route: 042

REACTIONS (7)
  - Pneumonia [Unknown]
  - Pleural effusion [Unknown]
  - Heart rate increased [Unknown]
  - Drug intolerance [Unknown]
  - Cellulitis [Unknown]
  - Rash [Unknown]
  - Dyspnoea [Unknown]
